FAERS Safety Report 12987114 (Version 2)
Quarter: 2016Q4

REPORT INFORMATION
  Report Type: Spontaneous
  Country: IT (occurrence: IT)
  Receive Date: 20161130
  Receipt Date: 20161207
  Transmission Date: 20170207
  Serious: Yes (Hospitalization)
  Sender: FDA-Public Use
  Company Number: IT-ABBVIE-16P-083-1794289-00

PATIENT
  Age: 54 Year
  Sex: Male

DRUGS (8)
  1. DARUNAVIR [Interacting]
     Active Substance: DARUNAVIR
     Indication: HIV INFECTION
     Route: 065
     Dates: start: 201209
  2. EMTRICITABINE / TENOFOVIR DISOPROXIL FUMARATE [Interacting]
     Active Substance: EMTRICITABINE\TENOFOVIR DISOPROXIL FUMARATE
     Indication: HIV INFECTION
     Route: 065
  3. RALTEGRAVIR. [Interacting]
     Active Substance: RALTEGRAVIR
     Indication: HIV INFECTION
     Route: 065
     Dates: start: 201209
  4. NORVIR [Suspect]
     Active Substance: RITONAVIR
     Indication: HIV INFECTION
     Route: 048
     Dates: start: 201209
  5. AZITHROMICIN [Interacting]
     Active Substance: AZITHROMYCIN
     Indication: OPPORTUNISTIC INFECTION PROPHYLAXIS
     Route: 065
     Dates: start: 201209
  6. TRIMETOPRIM/SULFAMETOXAZOLO [Interacting]
     Active Substance: SULFAMETHOXAZOLE\TRIMETHOPRIM
     Indication: OPPORTUNISTIC INFECTION PROPHYLAXIS
     Route: 065
  7. INDOMETACINA [Interacting]
     Active Substance: INDOMETHACIN
     Indication: PERICARDITIS
     Route: 065
     Dates: start: 201209
  8. LAMIVUDINE. [Interacting]
     Active Substance: LAMIVUDINE
     Indication: HIV INFECTION
     Route: 065
     Dates: start: 201209

REACTIONS (4)
  - Hepatitis cholestatic [Not Recovered/Not Resolved]
  - Diarrhoea [Unknown]
  - Acute kidney injury [Not Recovered/Not Resolved]
  - Drug interaction [Not Recovered/Not Resolved]

NARRATIVE: CASE EVENT DATE: 201209
